FAERS Safety Report 10040485 (Version 3)
Quarter: 2014Q2

REPORT INFORMATION
  Report Type: Spontaneous
  Country: US (occurrence: US)
  Receive Date: 20140327
  Receipt Date: 20140410
  Transmission Date: 20141212
  Serious: Yes (Hospitalization)
  Sender: FDA-Public Use
  Company Number: US-DRREDDYS-USA/USA/14/0039187

PATIENT
  Sex: Female
  Weight: 48.08 kg

DRUGS (2)
  1. ZENATANE [Suspect]
     Indication: PRODUCT USED FOR UNKNOWN INDICATION
     Route: 048
     Dates: start: 20140306
  2. CELEXA [Concomitant]
     Indication: AFFECTIVE DISORDER
     Route: 065

REACTIONS (1)
  - Affective disorder [Not Recovered/Not Resolved]
